FAERS Safety Report 24585734 (Version 4)
Quarter: 2025Q4

REPORT INFORMATION
  Report Type: Report from Study
  Country: US (occurrence: None)
  Receive Date: 20241106
  Receipt Date: 20251114
  Transmission Date: 20260117
  Serious: Yes (Other)
  Sender: UCB
  Company Number: US-UCBSA-2024056598

PATIENT
  Age: 7 Year
  Weight: 20.7 kg

DRUGS (4)
  1. FENFLURAMINE [Suspect]
     Active Substance: FENFLURAMINE
     Indication: Lennox-Gastaut syndrome
     Dosage: 14.08 MILLIGRAM PER DAY
  2. FENFLURAMINE [Suspect]
     Active Substance: FENFLURAMINE
     Dosage: 14.08 MILLIGRAM/KILOGRAM/DAY TOTALLY 7.04 MILLIGRAM PER DAY.
  3. FENFLURAMINE [Suspect]
     Active Substance: FENFLURAMINE
     Dosage: 14.08 MILLIGRAM PER DAY
  4. FENFLURAMINE [Suspect]
     Active Substance: FENFLURAMINE
     Dosage: 14 MG/DAY

REACTIONS (1)
  - Tricuspid valve incompetence [Unknown]
